FAERS Safety Report 5658017-5 (Version None)
Quarter: 2008Q1

REPORT INFORMATION
  Report Type: 
  Country: None (occurrence: None)
  Receive Date: 20080306
  Receipt Date: 20080226
  Transmission Date: 20080703
  Serious: Yes (Death, Hospitalization, Disabling)
  Sender: FDA-Public Use
  Company Number: 230839J08USA

PATIENT
  Age: 38 Year
  Sex: Female
  Weight: 106.5953 kg

DRUGS (7)
  1. REBIF [Suspect]
     Indication: MULTIPLE SCLEROSIS
     Dosage: 44 MCG, 3 IN 1 WEEKS, SUBCUTANEOUS
     Route: 058
     Dates: start: 20060803, end: 20070905
  2. AMLODIPINE [Concomitant]
  3. LOTREL [Concomitant]
  4. METOPROLOL (METOPROLOL /00376901/) [Concomitant]
  5. FUROSEMIDE (FUROSEMIDE /00032601/) [Concomitant]
  6. HYDROCODONE AND ACETAMINOPHEN (VICODIN) [Concomitant]
  7. TYLENOL (COTYLENOL) [Concomitant]

REACTIONS (14)
  - ACUTE HEPATIC FAILURE [None]
  - AORTIC DISORDER [None]
  - BONE PAIN [None]
  - CONDITION AGGRAVATED [None]
  - DIALYSIS [None]
  - HALLUCINATION [None]
  - INSOMNIA [None]
  - MULTI-ORGAN FAILURE [None]
  - MULTIPLE SCLEROSIS [None]
  - MUSCLE SPASMS [None]
  - RENAL FAILURE ACUTE [None]
  - SEPTIC SHOCK [None]
  - THYROID DISORDER [None]
  - URINARY TRACT INFECTION [None]
